FAERS Safety Report 9472140 (Version 1)
Quarter: 2013Q3

REPORT INFORMATION
  Report Type: Report from Study
  Country: JP (occurrence: JP)
  Receive Date: 20130823
  Receipt Date: 20130823
  Transmission Date: 20140515
  Serious: Yes (Hospitalization)
  Sender: FDA-Public Use
  Company Number: JP-BRISTOL-MYERS SQUIBB COMPANY-19208594

PATIENT
  Age: 77 Year
  Sex: Female

DRUGS (16)
  1. CARBOPLATIN [Suspect]
     Indication: NON-SMALL CELL LUNG CANCER
     Dosage: INTER ON 24MAY13
     Route: 041
     Dates: start: 20130524
  2. PACLITAXEL [Suspect]
     Indication: NON-SMALL CELL LUNG CANCER
     Route: 041
     Dates: start: 20130524
  3. ZYPREXA [Suspect]
     Indication: DECREASED APPETITE
     Route: 048
     Dates: start: 20130531, end: 20130601
  4. NAUZELIN [Suspect]
     Indication: NAUSEA
     Route: 048
     Dates: start: 20130531, end: 20130601
  5. LOXONIN [Concomitant]
     Indication: MYALGIA
     Route: 048
     Dates: start: 201303
  6. LIPITOR [Concomitant]
     Indication: HYPERLIPIDAEMIA
     Route: 048
     Dates: start: 2002
  7. MAINTATE [Concomitant]
     Indication: HYPERTENSION
     Route: 048
     Dates: start: 2002
  8. SUNRYTHM [Concomitant]
     Indication: ARRHYTHMIA PROPHYLAXIS
     Route: 048
     Dates: start: 2004
  9. ATELEC [Concomitant]
     Indication: HYPERTENSION
     Route: 048
     Dates: start: 2012
  10. DEPAS [Concomitant]
     Indication: INSOMNIA
     Route: 048
     Dates: start: 2005
  11. BAYASPIRIN [Concomitant]
     Indication: PROPHYLAXIS
     Route: 048
     Dates: start: 2005
  12. MYSLEE [Concomitant]
     Indication: INSOMNIA
     Route: 048
     Dates: start: 20130526
  13. EBRANTIL [Concomitant]
     Indication: URINARY RETENTION
     Route: 048
     Dates: start: 20130604
  14. SERENACE [Concomitant]
     Indication: RESTLESSNESS
     Route: 048
     Dates: start: 20130604
  15. MAGMITT [Concomitant]
     Indication: CONSTIPATION
     Route: 048
     Dates: start: 20130527
  16. HACHIAZULE [Concomitant]
     Indication: PROPHYLAXIS
     Dates: start: 20130529

REACTIONS (1)
  - Hyponatraemia [Recovered/Resolved]
